FAERS Safety Report 24140772 (Version 3)
Quarter: 2024Q3

REPORT INFORMATION
  Report Type: Spontaneous
  Country: AU (occurrence: US)
  Receive Date: 20240726
  Receipt Date: 20240909
  Transmission Date: 20241017
  Serious: Yes (Other)
  Sender: Harrow Health
  Company Number: AU-IMP-2024000499

PATIENT
  Age: 35 Year
  Sex: Male

DRUGS (1)
  1. MAXIDEX [Suspect]
     Active Substance: DEXAMETHASONE
     Indication: Product used for unknown indication
     Dosage: LEFT EYE 4 X A DAY, FOR 28 DAYS STRAIGHT
     Route: 065

REACTIONS (10)
  - Myocardial infarction [Unknown]
  - Eye oedema [Unknown]
  - Cataract [Unknown]
  - Eye swelling [Unknown]
  - Palpitations [Unknown]
  - Headache [Unknown]
  - Chest pain [Unknown]
  - Dizziness [Unknown]
  - Glare [Unknown]
  - Pain in jaw [Unknown]
